FAERS Safety Report 18208452 (Version 1)
Quarter: 2020Q3

REPORT INFORMATION
  Report Type: Spontaneous
  Country: CA (occurrence: CA)
  Receive Date: 20200828
  Receipt Date: 20200828
  Transmission Date: 20201103
  Serious: Yes (Death)
  Sender: FDA-Public Use
  Company Number: CA-ASTRAZENECA-2020SF07869

PATIENT
  Age: 33 Year
  Sex: Male

DRUGS (6)
  1. CANNABIS [Interacting]
     Active Substance: CANNABIS SATIVA SUBSP. INDICA TOP
     Route: 065
  2. QUETIAPINE. [Suspect]
     Active Substance: QUETIAPINE
     Route: 048
  3. METHADONE [Interacting]
     Active Substance: METHADONE HYDROCHLORIDE
     Route: 065
  4. NAPROXEN. [Interacting]
     Active Substance: NAPROXEN
     Route: 065
  5. PREGABALIN. [Interacting]
     Active Substance: PREGABALIN
     Route: 065
  6. CLONAZEPAM. [Interacting]
     Active Substance: CLONAZEPAM
     Route: 065

REACTIONS (3)
  - Withdrawal arrhythmia [Fatal]
  - Sudden cardiac death [Fatal]
  - Drug interaction [Fatal]
